FAERS Safety Report 5250490-X (Version None)
Quarter: 2007Q1

REPORT INFORMATION
  Report Type: 
  Country: None (occurrence: None)
  Receive Date: 20070228
  Receipt Date: 20060905
  Transmission Date: 20070707
  Serious: Yes (Hospitalization)
  Sender: FDA-Public Use
  Company Number: US016856

PATIENT
  Age: 17 Year
  Sex: Female
  Weight: 54.5 kg

DRUGS (4)
  1. LAMICTAL [Suspect]
     Indication: BIPOLAR DISORDER
     Dosage: 300MG PER DAY
     Route: 048
     Dates: start: 20051018, end: 20051202
  2. PROVIGIL [Suspect]
     Indication: ATTENTION DEFICIT/HYPERACTIVITY DISORDER
     Route: 048
     Dates: start: 20051018, end: 20060113
  3. ABILIFY [Concomitant]
     Dates: start: 20051209
  4. SPIRONOLACTONE [Concomitant]
     Dates: start: 20040101

REACTIONS (1)
  - STEVENS-JOHNSON SYNDROME [None]
